FAERS Safety Report 23927095 (Version 1)
Quarter: 2024Q2

REPORT INFORMATION
  Report Type: Spontaneous
  Country: US (occurrence: US)
  Receive Date: 20240531
  Receipt Date: 20240531
  Transmission Date: 20240715
  Serious: No
  Sender: FDA-Public Use
  Company Number: US-RADIUS HEALTH, INC.-2023US003838

PATIENT
  Age: 79 Year
  Sex: Female

DRUGS (2)
  1. TYMLOS [Suspect]
     Active Substance: ABALOPARATIDE
     Indication: Senile osteoporosis
     Dosage: 80 MICROGRAM, QD
     Route: 058
     Dates: start: 20230706
  2. LIDOCAINE [Suspect]
     Active Substance: LIDOCAINE
     Indication: Arthropathy

REACTIONS (8)
  - Arthropathy [Unknown]
  - Weight increased [Unknown]
  - Condition aggravated [Unknown]
  - Constipation [Unknown]
  - Headache [Unknown]
  - Pain [Unknown]
  - Injection site bruising [Recovered/Resolved]
  - Dizziness [Unknown]

NARRATIVE: CASE EVENT DATE: 20230701
